FAERS Safety Report 21040344 (Version 1)
Quarter: 2022Q3

REPORT INFORMATION
  Report Type: Spontaneous
  Country: DE (occurrence: DE)
  Receive Date: 20220704
  Receipt Date: 20220704
  Transmission Date: 20221027
  Serious: Yes (Hospitalization)
  Sender: FDA-Public Use
  Company Number: DE-BAYER-2022A088952

PATIENT
  Age: 96 Year
  Sex: Female

DRUGS (2)
  1. XARELTO [Suspect]
     Active Substance: RIVAROXABAN
     Indication: Cerebrovascular accident prophylaxis
     Dosage: 10 MG, OM
     Route: 048
     Dates: start: 20210601
  2. RAMIPRIL [Concomitant]
     Active Substance: RAMIPRIL
     Indication: Hypertension

REACTIONS (15)
  - General physical health deterioration [Unknown]
  - Unresponsive to stimuli [Unknown]
  - Rash macular [Unknown]
  - Haemorrhage subcutaneous [Unknown]
  - Cough [Unknown]
  - Dyspnoea [Unknown]
  - Constipation [Unknown]
  - Contusion [Unknown]
  - Fatigue [Unknown]
  - Iron deficiency [Unknown]
  - Diarrhoea [Unknown]
  - Weight decreased [Unknown]
  - Chronic obstructive pulmonary disease [Unknown]
  - Dehydration [Unknown]
  - Salivary hypersecretion [Unknown]

NARRATIVE: CASE EVENT DATE: 20210715
